FAERS Safety Report 9220329 (Version 1)
Quarter: 2013Q1

REPORT INFORMATION
  Report Type: Spontaneous
  Country: US (occurrence: None)
  Receive Date: 20120831
  Receipt Date: 20120831
  Transmission Date: 20140127
  Serious: No
  Sender: FDA-Public Use
  Company Number: 1000030813

PATIENT
  Age: 66 Year
  Sex: Female

DRUGS (5)
  1. DALIRESP (ROFLUMILAST) (500 MICROGRAM, TABLETS) [Suspect]
     Indication: CHRONIC OBSTRUCTIVE PULMONARY DISEASE
     Route: 048
     Dates: start: 20120520
  2. ALBUTEROL ( ALBUTEROL) ( ALBUTEROL) [Concomitant]
  3. SPIRIVA ( TIOTROPIUM BROMIDE) ( TIOTROPIUM BROMIDE) [Concomitant]
  4. ADVAIR ( FLUTICASONE) ( FLUTICASONE) [Concomitant]
  5. PREDNISONE (PREDNISONE) ( PREDNISONE) [Concomitant]

REACTIONS (4)
  - Diarrhoea [None]
  - Nausea [None]
  - Insomnia [None]
  - Agitation [None]
